FAERS Safety Report 6411207-6 (Version None)
Quarter: 2009Q4

REPORT INFORMATION
  Report Type: 
  Country: None (occurrence: None)
  Receive Date: 20091019
  Receipt Date: 20091005
  Transmission Date: 20100525
  Serious: Yes (Death)
  Sender: FDA-Public Use
  Company Number: PHHY2009JP41411

PATIENT
  Age: 74 Year
  Sex: Female
  Weight: 41.0052 kg

DRUGS (3)
  1. VISUDYNE [Suspect]
     Indication: MACULAR DEGENERATION
     Dosage: 6 MG/M^2 ONCE IV
     Route: 042
     Dates: start: 20090703, end: 20090703
  2. LUCENTIS [Suspect]
     Indication: MACULAR DEGENERATION
     Dosage: 0.05 ML ONCE EY
     Dates: start: 20090916, end: 20090916
  3. STEROIDS NOS [Suspect]
     Indication: MACULAR DEGENERATION
     Dates: start: 20090101, end: 20090101

REACTIONS (1)
  - MYOCARDIAL INFARCTION [None]
